FAERS Safety Report 18516724 (Version 3)
Quarter: 2021Q1

REPORT INFORMATION
  Report Type: Spontaneous
  Country: US (occurrence: US)
  Receive Date: 20201118
  Receipt Date: 20210325
  Transmission Date: 20210419
  Serious: No
  Sender: FDA-Public Use
  Company Number: US-MYLANLABS-2020M1091744

PATIENT
  Age: 73 Year
  Sex: Female
  Weight: 85.71 kg

DRUGS (3)
  1. FLUTICASONE. [Concomitant]
     Active Substance: FLUTICASONE
     Dosage: UNK
  2. DYMISTA [Suspect]
     Active Substance: AZELASTINE HYDROCHLORIDE\FLUTICASONE PROPIONATE
     Indication: HYPERSENSITIVITY
     Dosage: UNK
     Route: 045
     Dates: start: 2017
  3. DYMISTA [Suspect]
     Active Substance: AZELASTINE HYDROCHLORIDE\FLUTICASONE PROPIONATE
     Dosage: UNK UNK, BID (2 SPRAYS IN EACH NOSE TWICE A DAY)
     Route: 045

REACTIONS (3)
  - Drug ineffective [Not Recovered/Not Resolved]
  - Headache [Unknown]
  - Oropharyngeal pain [Unknown]
